FAERS Safety Report 23394162 (Version 1)
Quarter: 2024Q1

REPORT INFORMATION
  Report Type: Spontaneous
  Country: CA (occurrence: CA)
  Receive Date: 20240111
  Receipt Date: 20240111
  Transmission Date: 20240410
  Serious: Yes (Hospitalization, Other)
  Sender: FDA-Public Use
  Company Number: CA-FreseniusKabi-FK202400465

PATIENT
  Age: 3 Year
  Sex: Female

DRUGS (2)
  1. MIDAZOLAM HYDROCHLORIDE [Suspect]
     Active Substance: MIDAZOLAM HYDROCHLORIDE
     Indication: Seizure
     Dosage: FOA: SOLUTION INTRAMUSCULAR?FREQUENCY: ONCE
     Route: 030
  2. LORAZEPAM [Suspect]
     Active Substance: LORAZEPAM
     Indication: Seizure
     Dosage: FOA: NOT SPECIFIED
     Route: 042

REACTIONS (6)
  - Decerebrate posture [Recovered/Resolved]
  - Endotracheal intubation [Recovered/Resolved]
  - Hypertonia [Recovered/Resolved]
  - Hypoventilation [Recovered/Resolved]
  - Mechanical ventilation [Recovered/Resolved]
  - Respiratory failure [Recovered/Resolved]
